FAERS Safety Report 9746204 (Version 1)
Quarter: 2013Q4

REPORT INFORMATION
  Report Type: Spontaneous
  Country: US (occurrence: None)
  Receive Date: 20131209
  Receipt Date: 20131209
  Transmission Date: 20140711
  Serious: Yes (Disabling)
  Sender: FDA-Public Use
  Company Number: None

PATIENT
  Age: 43 Year
  Sex: Female
  Weight: 58.06 kg

DRUGS (1)
  1. LEVAQUIN [Suspect]
     Indication: SEPSIS
     Route: 048
     Dates: start: 20131022, end: 20131029

REACTIONS (4)
  - Neuropathy peripheral [None]
  - Photosensitivity reaction [None]
  - Tendon pain [None]
  - Nervous system disorder [None]
